FAERS Safety Report 25987967 (Version 1)
Quarter: 2025Q4

REPORT INFORMATION
  Report Type: Spontaneous
  Country: US (occurrence: US)
  Receive Date: 20251103
  Receipt Date: 20251103
  Transmission Date: 20260117
  Serious: No
  Sender: STALLERGENES
  Company Number: US-STALCOR-2025-AER-02626

PATIENT
  Age: 1 Year
  Sex: Male

DRUGS (2)
  1. PALFORZIA [Suspect]
     Active Substance: PEANUT
     Indication: Food allergy
     Dosage: MIX CONTENTS OF CAPSULES WELL WITH SEMISOLID FOOD AS DIRECETD AND CONSUME ONCE DAILY APPROXIMATELY A
     Route: 048
  2. AMOXICILLIN [Concomitant]
     Active Substance: AMOXICILLIN
     Indication: Product used for unknown indication

REACTIONS (2)
  - Hand-foot-and-mouth disease [Not Recovered/Not Resolved]
  - Therapy interrupted [Not Recovered/Not Resolved]
